FAERS Safety Report 9553692 (Version 1)
Quarter: 2013Q3

REPORT INFORMATION
  Report Type: Spontaneous
  Country: IN (occurrence: None)
  Receive Date: 20130923
  Receipt Date: 20130923
  Transmission Date: 20140515
  Serious: Yes (Other)
  Sender: FDA-Public Use
  Company Number: 2013P1019352

PATIENT
  Age: 41 Year
  Sex: Male

DRUGS (4)
  1. NEVIRAPINE [Suspect]
     Indication: HIV INFECTION
     Dates: start: 20111227
  2. ZIDOVUDINE [Concomitant]
  3. LAMIVUDINE [Concomitant]
  4. UNSPECIFIED ANTITUBERCULAR THERAPY [Concomitant]

REACTIONS (2)
  - Diarrhoea [None]
  - Drug reaction with eosinophilia and systemic symptoms [None]
